FAERS Safety Report 23366300 (Version 6)
Quarter: 2024Q1

REPORT INFORMATION
  Report Type: Spontaneous
  Country: IT (occurrence: IT)
  Receive Date: 20240104
  Receipt Date: 20240314
  Transmission Date: 20240410
  Serious: Yes (Death, Hospitalization)
  Sender: FDA-Public Use
  Company Number: IT-ROCHE-2593522

PATIENT
  Age: 62 Year
  Sex: Female
  Weight: 110 kg

DRUGS (101)
  1. PACLITAXEL [Suspect]
     Active Substance: PACLITAXEL
     Indication: Breast cancer metastatic
     Dosage: 80 MG, QW, (MOST RECENT DOSE PRIOR TO THE EVENT: 27/JUN/2017)
     Route: 042
     Dates: start: 20170303, end: 20170413
  2. PACLITAXEL [Suspect]
     Active Substance: PACLITAXEL
     Dosage: 120 MG
     Route: 042
     Dates: start: 20170420, end: 20170606
  3. PACLITAXEL [Suspect]
     Active Substance: PACLITAXEL
     Dosage: 120 MG
     Route: 042
     Dates: start: 20170620, end: 20170620
  4. PACLITAXEL [Suspect]
     Active Substance: PACLITAXEL
     Dosage: 120 MG
     Route: 042
     Dates: start: 20170627
  5. PACLITAXEL [Suspect]
     Active Substance: PACLITAXEL
     Dosage: 130 MG (MOST RECENT DOSE PRIOR TO THE EVENT: 12/SEP/2017)
     Route: 042
     Dates: start: 20170912
  6. PACLITAXEL [Suspect]
     Active Substance: PACLITAXEL
     Dosage: 3000 MG, QD (1500 MG, BID)
     Route: 042
     Dates: start: 20191209
  7. PACLITAXEL [Suspect]
     Active Substance: PACLITAXEL
     Dosage: 1000 MG
     Route: 048
     Dates: start: 20200901
  8. PACLITAXEL [Suspect]
     Active Substance: PACLITAXEL
     Dosage: 80 MG (MOST RECENTPRIOR TO THE EVENT: 24/SEP/2020)
     Route: 042
     Dates: start: 20200924
  9. LAPATINIB [Suspect]
     Active Substance: LAPATINIB
     Indication: Breast cancer metastatic
     Dosage: 1250 MG, QD (MOST RECENT DOSE PRIOR TO AE 19/JUN/2020) (SOLUTION FOR INFUSION)
     Route: 065
     Dates: start: 20191209
  10. ANASTROZOLE [Suspect]
     Active Substance: ANASTROZOLE
     Indication: Breast cancer metastatic
     Dosage: 1 MG, QD, (MOST RECENT DOSE PRIOR TO AE 12/JUN/2019)
     Route: 048
     Dates: start: 20170918, end: 20190612
  11. ANASTROZOLE [Suspect]
     Active Substance: ANASTROZOLE
     Dosage: 1 MG, QD (MOST RECENT DOSE PRIOR TO AE 12/JUN/2019)
     Route: 042
  12. TYKERB [Suspect]
     Active Substance: LAPATINIB DITOSYLATE
     Indication: Breast cancer metastatic
     Dosage: 1250 MG, QD (MOST RECENT DOSE PRIOR TO AE 19/JUN/2020)
     Route: 048
     Dates: start: 20191209, end: 20200619
  13. CAPECITABINE [Suspect]
     Active Substance: CAPECITABINE
     Indication: Breast cancer metastatic
     Dosage: 1500 MG, BID MOST RECENT DOSE PRIOR TO THE EVENT: 09/DEC/2019
     Route: 048
     Dates: start: 20191209, end: 20191230
  14. CAPECITABINE [Suspect]
     Active Substance: CAPECITABINE
     Dosage: 1000 MG
     Route: 048
     Dates: start: 20200120, end: 20200611
  15. CAPECITABINE [Suspect]
     Active Substance: CAPECITABINE
     Dosage: 3000 MG, (1500 MG TWICE PER DAY)
     Route: 048
     Dates: start: 20200618
  16. CAPECITABINE [Suspect]
     Active Substance: CAPECITABINE
     Dosage: 3000 MG MOST RECENT DOSE PRIOR TO THE EVENT: 1/SEP/2020
     Route: 048
     Dates: start: 20200901
  17. CAPECITABINE [Suspect]
     Active Substance: CAPECITABINE
     Dosage: 3000 MG 1500 MG (0.5 DAY) (MOST RECENT DOSE PRIOR TO THE EVENT: 09/DEC/2019)
     Route: 048
     Dates: start: 20191209, end: 20191230
  18. TRASTUZUMAB [Suspect]
     Active Substance: TRASTUZUMAB
     Indication: Breast cancer metastatic
     Dosage: 800 MG, Q4W, (MOST RECENT DOSE PRIOR TO THE EVENT: 20/JUN/2017)
     Route: 042
     Dates: start: 20170303, end: 20170303
  19. ADO-TRASTUZUMAB EMTANSINE [Suspect]
     Active Substance: ADO-TRASTUZUMAB EMTANSINE
     Indication: Breast cancer metastatic
     Dosage: 270 MG, Q3W (MOST RECENT DOSE PRIOR TO THE EVENT: 04/SEP/2019)
     Route: 065
     Dates: start: 20190612
  20. PERTUZUMAB [Suspect]
     Active Substance: PERTUZUMAB
     Indication: Breast cancer metastatic
     Dosage: 840 MG, Q4W (MOST RECENT DOSE PRIOR TO THE EVENT: 20/JUN/2020)
     Route: 048
     Dates: start: 20170303, end: 20170303
  21. HERCEPTIN [Suspect]
     Active Substance: TRASTUZUMAB
     Indication: Breast cancer metastatic
     Dosage: UNK
     Route: 065
     Dates: start: 20170330
  22. HERCEPTIN [Suspect]
     Active Substance: TRASTUZUMAB
     Dosage: 800 MG, Q4W
     Route: 042
     Dates: start: 20170620
  23. HERCEPTIN [Suspect]
     Active Substance: TRASTUZUMAB
     Dosage: 800 MG, Q4W MOST RECENT DOSE PRIOR TO THE EVENT: 20/JUN/2017
     Route: 042
     Dates: start: 20170303, end: 20170303
  24. HERCEPTIN [Suspect]
     Active Substance: TRASTUZUMAB
     Dosage: 600 MG, Q4W MOST RECENT DOSE PRIOR TO THE EVENT: 14 MAY 2019
     Route: 042
     Dates: start: 20190514
  25. ARIMIDEX [Suspect]
     Active Substance: ANASTROZOLE
     Indication: Breast cancer metastatic
     Dosage: 1 MG, QD (MOST RECENT DOSE PRIOR TO AE 12/JUN/2019)
     Route: 048
     Dates: start: 20170918, end: 20190612
  26. PERJETA [Suspect]
     Active Substance: PERTUZUMAB
     Indication: Breast cancer metastatic
     Dosage: 420 MG
     Route: 042
     Dates: start: 20170330, end: 20170606
  27. PERJETA [Suspect]
     Active Substance: PERTUZUMAB
     Dosage: 840 MG, Q4W MOST RECENT DOSE PRIOR TO THE EVENT: 20/JUN/2020
     Route: 042
     Dates: start: 20170303, end: 20170303
  28. PERJETA [Suspect]
     Active Substance: PERTUZUMAB
     Dosage: 420 MG, Q4W (MOST RECENT DOSE PRIOR TO THE EVENT: 14/MAY/2019)
     Route: 042
     Dates: start: 20190514
  29. PERJETA [Suspect]
     Active Substance: PERTUZUMAB
     Dosage: 840 MG, Q4W
     Route: 042
     Dates: start: 20170620
  30. ERIBULIN [Suspect]
     Active Substance: ERIBULIN
     Indication: Product used for unknown indication
     Dosage: 1.5 MG
     Route: 042
     Dates: start: 20210712, end: 20210825
  31. ERIBULIN [Suspect]
     Active Substance: ERIBULIN
     Dosage: 1.5 MG
     Route: 042
  32. KADCYLA [Suspect]
     Active Substance: ADO-TRASTUZUMAB EMTANSINE
     Indication: Breast cancer metastatic
     Dosage: 360 MG, TIW (MOST RECENT DOSE PRIOR TO THE EVENT: 12 NOV 2019)
     Route: 042
     Dates: start: 20191112
  33. KADCYLA [Suspect]
     Active Substance: ADO-TRASTUZUMAB EMTANSINE
     Dosage: 270 MG, TIW (MOST RECENT DOSE PRIOR TO THE EVENT: 04/SEP/2019)
     Route: 042
     Dates: start: 20190612, end: 20190703
  34. KADCYLA [Suspect]
     Active Substance: ADO-TRASTUZUMAB EMTANSINE
     Dosage: 360 MG, TIW
     Route: 042
     Dates: start: 20190724, end: 20190724
  35. KADCYLA [Suspect]
     Active Substance: ADO-TRASTUZUMAB EMTANSINE
     Dosage: 360 MG, TIW
     Route: 042
     Dates: start: 20190814, end: 20190814
  36. KADCYLA [Suspect]
     Active Substance: ADO-TRASTUZUMAB EMTANSINE
     Dosage: 270 MG, TIW
     Route: 042
     Dates: start: 20190904
  37. KADCYLA [Suspect]
     Active Substance: ADO-TRASTUZUMAB EMTANSINE
     Dosage: 1080 MG, QW (360 MG, TIW  )
     Route: 042
     Dates: start: 20190724, end: 20190724
  38. KADCYLA [Suspect]
     Active Substance: ADO-TRASTUZUMAB EMTANSINE
     Dosage: 1080 MG, QW (360 MG, TIW)
     Route: 042
     Dates: start: 20190814, end: 20190814
  39. KADCYLA [Suspect]
     Active Substance: ADO-TRASTUZUMAB EMTANSINE
     Dosage: MOST RECENT DOSE PRIOR TO THE EVENT: 12 NOV 2019
     Route: 042
     Dates: start: 20191112
  40. KADCYLA [Suspect]
     Active Substance: ADO-TRASTUZUMAB EMTANSINE
     Dosage: 810 MG, QW (270 MG, TIW)
     Route: 042
     Dates: start: 20190904
  41. KADCYLA [Suspect]
     Active Substance: ADO-TRASTUZUMAB EMTANSINE
     Dosage: 810 MG, QW MOST RECENT DOSE PRIOR TO THE EVENT: 04/SEP/2019
     Route: 042
     Dates: start: 20190612, end: 20190703
  42. TORSEMIDE [Concomitant]
     Active Substance: TORSEMIDE
     Indication: Hypertensive crisis
     Dosage: 5 MG, QD ONGOING = CHECKED
     Route: 048
     Dates: start: 20180313
  43. ZOLEDRONIC ACID [Concomitant]
     Active Substance: ZOLEDRONIC ACID
     Indication: Product used for unknown indication
     Dosage: 4 MG
     Route: 065
     Dates: start: 20170215, end: 20170320
  44. ZOLEDRONIC ACID [Concomitant]
     Active Substance: ZOLEDRONIC ACID
     Dosage: UNK
     Route: 065
     Dates: start: 20170320, end: 20170320
  45. ZOLEDRONIC ACID [Concomitant]
     Active Substance: ZOLEDRONIC ACID
     Dosage: 4 MG (EVERY 28GG)
     Route: 042
     Dates: start: 20200120
  46. ZOLEDRONIC ACID [Concomitant]
     Active Substance: ZOLEDRONIC ACID
     Dosage: 4 MG (ONGOING = CHECKED)
     Route: 042
     Dates: start: 20170215
  47. ZOLEDRONIC ACID [Concomitant]
     Active Substance: ZOLEDRONIC ACID
     Dosage: 4 MG (ONGOING = CHECKED)
     Route: 042
     Dates: start: 20170215
  48. ZOLEDRONIC ACID [Concomitant]
     Active Substance: ZOLEDRONIC ACID
     Dosage: ONGOING = CHECKED
     Route: 065
  49. LOSARTAN [Concomitant]
     Active Substance: LOSARTAN
     Indication: Hypertensive crisis
     Dosage: UNK (ONGOING = CHECKED)
     Route: 065
     Dates: start: 20180313
  50. LOSARTAN [Concomitant]
     Active Substance: LOSARTAN
     Dosage: 50 MG, QD (ONGOING = CHECKED)
     Route: 065
     Dates: end: 20180312
  51. LOSARTAN [Concomitant]
     Active Substance: LOSARTAN
     Dosage: 1 DOSAGE FORM (ONGOING = CHECKED)
     Route: 065
     Dates: start: 20180313
  52. LOSARTAN [Concomitant]
     Active Substance: LOSARTAN
     Dosage: 50 MG, QD
     Route: 065
     Dates: start: 20180312
  53. OMEPRAZOLE [Concomitant]
     Active Substance: OMEPRAZOLE
     Indication: Product used for unknown indication
     Dosage: UNK
     Route: 065
     Dates: start: 20191209
  54. OMEPRAZOLE [Concomitant]
     Active Substance: OMEPRAZOLE
     Dosage: 40 MG, QD
     Route: 048
     Dates: start: 20191209
  55. CITALOPRAM [Concomitant]
     Active Substance: CITALOPRAM HYDROBROMIDE
     Indication: Product used for unknown indication
     Dosage: UNK
     Route: 065
  56. CITALOPRAM [Concomitant]
     Active Substance: CITALOPRAM HYDROBROMIDE
     Dosage: 20 MG, QD
     Route: 048
  57. CITALOPRAM [Concomitant]
     Active Substance: CITALOPRAM HYDROBROMIDE
     Dosage: UNK
     Route: 065
  58. CITALOPRAM [Concomitant]
     Active Substance: CITALOPRAM HYDROBROMIDE
     Dosage: UNK
     Route: 065
  59. RANITIDINE [Concomitant]
     Active Substance: RANITIDINE
     Indication: Product used for unknown indication
     Dosage: 100 MG
     Route: 042
     Dates: start: 20180303, end: 20180912
  60. DEXAMETHASONE [Concomitant]
     Active Substance: DEXAMETHASONE
     Indication: Product used for unknown indication
     Dosage: 8 MG
     Route: 042
     Dates: start: 20170303, end: 20171003
  61. DEXAMETHASONE [Concomitant]
     Active Substance: DEXAMETHASONE
     Dosage: 8 MG
     Route: 042
     Dates: start: 20190612, end: 20191112
  62. DEXAMETHASONE [Concomitant]
     Active Substance: DEXAMETHASONE
     Dosage: 8 MG
     Route: 042
     Dates: start: 20200924
  63. DEXAMETHASONE [Concomitant]
     Active Substance: DEXAMETHASONE
     Dosage: UNK
     Route: 065
     Dates: start: 20200924
  64. DEXAMETHASONE [Concomitant]
     Active Substance: DEXAMETHASONE
     Dosage: UNK
     Route: 065
     Dates: start: 20200924
  65. DEXAMETHASONE [Concomitant]
     Active Substance: DEXAMETHASONE
     Dosage: 8.000MG
     Route: 042
     Dates: start: 20190612, end: 20191112
  66. DEXAMETHASONE [Concomitant]
     Active Substance: DEXAMETHASONE
     Dosage: 8.000MG
     Route: 042
     Dates: start: 20200924
  67. DEXAMETHASONE [Concomitant]
     Active Substance: DEXAMETHASONE
     Dosage: 8.000MG
     Route: 042
     Dates: start: 20190612, end: 20191112
  68. DEXAMETHASONE [Concomitant]
     Active Substance: DEXAMETHASONE
     Dosage: 8.000MG
     Route: 042
     Dates: start: 20190612, end: 20191112
  69. DEXAMETHASONE [Concomitant]
     Active Substance: DEXAMETHASONE
     Dosage: 8.000MG
     Route: 042
     Dates: start: 20170303, end: 20171003
  70. DEXAMETHASONE [Concomitant]
     Active Substance: DEXAMETHASONE
     Dosage: 8.000MG
     Route: 042
     Dates: start: 20170303, end: 20171003
  71. DEXAMETHASONE [Concomitant]
     Active Substance: DEXAMETHASONE
     Dosage: 8.000MG
     Route: 042
     Dates: start: 20170303, end: 20171003
  72. DEXAMETHASONE [Concomitant]
     Active Substance: DEXAMETHASONE
     Dosage: 8.000MG
     Route: 042
     Dates: start: 20170303, end: 20171003
  73. DEXAMETHASONE [Concomitant]
     Active Substance: DEXAMETHASONE
     Dosage: 8.000MG
     Route: 042
     Dates: start: 20200924
  74. DEXAMETHASONE [Concomitant]
     Active Substance: DEXAMETHASONE
     Dosage: 8.000MG
     Route: 042
     Dates: start: 20200924
  75. DEXAMETHASONE [Concomitant]
     Active Substance: DEXAMETHASONE
     Dosage: 8.000MG
     Route: 042
     Dates: start: 20200924
  76. DEXAMETHASONE [Concomitant]
     Active Substance: DEXAMETHASONE
     Dosage: 8.000MG
     Route: 042
     Dates: start: 20190612, end: 20191112
  77. INSULIN GLARGINE [Concomitant]
     Active Substance: INSULIN GLARGINE
     Indication: Product used for unknown indication
     Dosage: UNK
     Route: 065
     Dates: start: 20190901
  78. INSULIN GLARGINE [Concomitant]
     Active Substance: INSULIN GLARGINE
     Dosage: ONGOING=CHECKEDUNK
     Route: 065
     Dates: start: 20190901
  79. INSULIN GLARGINE [Concomitant]
     Active Substance: INSULIN GLARGINE
     Dosage: ONGOING=CHECKEDUNK
     Route: 065
     Dates: start: 20190901
  80. INSULIN GLARGINE [Concomitant]
     Active Substance: INSULIN GLARGINE
     Dosage: ONGOING=CHECKEDUNK
     Route: 065
     Dates: start: 20190901
  81. INSULIN GLARGINE [Concomitant]
     Active Substance: INSULIN GLARGINE
     Dosage: ONGOING=CHECKEDUNK
     Route: 065
     Dates: start: 20190901
  82. INSULIN GLARGINE [Concomitant]
     Active Substance: INSULIN GLARGINE
     Dosage: ONGOING=CHECKEDUNK
     Route: 065
     Dates: start: 20190901
  83. INSULIN GLARGINE [Concomitant]
     Active Substance: INSULIN GLARGINE
     Dosage: ONGOING=CHECKEDUNK
     Route: 065
     Dates: start: 20190901
  84. INSULIN GLARGINE [Concomitant]
     Active Substance: INSULIN GLARGINE
     Dosage: ONGOING=CHECKEDUNK
     Route: 065
     Dates: start: 20190901
  85. CHLORPHENIRAMINE MALEATE [Concomitant]
     Active Substance: CHLORPHENIRAMINE MALEATE
     Indication: Product used for unknown indication
     Dosage: UNK
     Route: 065
     Dates: start: 20200924
  86. ERTAPENEM [Concomitant]
     Active Substance: ERTAPENEM
     Indication: Product used for unknown indication
     Dosage: 1 G, QD
     Route: 042
     Dates: start: 20200813, end: 20200828
  87. ONDANSETRON [Concomitant]
     Active Substance: ONDANSETRON
     Indication: Product used for unknown indication
     Dosage: 8 MG
     Route: 042
     Dates: start: 20200924
  88. CIMETIDINE [Concomitant]
     Active Substance: CIMETIDINE
     Indication: Product used for unknown indication
     Dosage: 300 MG
     Route: 042
     Dates: start: 20200924
  89. FENTANYL [Concomitant]
     Active Substance: FENTANYL\FENTANYL CITRATE
     Indication: Product used for unknown indication
     Dosage: UNK
     Route: 065
  90. FENTANYL [Concomitant]
     Active Substance: FENTANYL\FENTANYL CITRATE
     Dosage: UNK
     Route: 065
  91. FENTANYL [Concomitant]
     Active Substance: FENTANYL\FENTANYL CITRATE
     Dosage: UNK
     Route: 065
  92. INSULIN GLARGINE [Concomitant]
     Active Substance: INSULIN GLARGINE
     Indication: Product used for unknown indication
     Dosage: UNK
     Route: 065
  93. INSULIN GLARGINE [Concomitant]
     Active Substance: INSULIN GLARGINE
     Dosage: UNK
     Route: 065
  94. INSULIN GLARGINE [Concomitant]
     Active Substance: INSULIN GLARGINE
     Dosage: UNK
     Route: 065
  95. ATENOLOL [Concomitant]
     Active Substance: ATENOLOL
     Indication: Product used for unknown indication
     Dosage: UNK
     Route: 065
  96. ATENOLOL [Concomitant]
     Active Substance: ATENOLOL
     Dosage: UNK
     Route: 065
  97. ATENOLOL [Concomitant]
     Active Substance: ATENOLOL
     Dosage: UNK
     Route: 065
  98. GLYCOPYRROLATE [Concomitant]
     Active Substance: GLYCOPYRROLATE
     Indication: Product used for unknown indication
     Dosage: UNK
     Route: 065
  99. PREDNISONE [Concomitant]
     Active Substance: PREDNISONE
     Indication: Product used for unknown indication
     Dosage: UNK
     Route: 065
  100. FUROSEMIDE [Concomitant]
     Active Substance: FUROSEMIDE
     Indication: Product used for unknown indication
     Dosage: UNK
     Route: 065
     Dates: start: 20210901
  101. PANTOPRAZOLE [Concomitant]
     Active Substance: PANTOPRAZOLE
     Indication: Breast cancer metastatic
     Route: 065

REACTIONS (12)
  - Cardiac failure [Fatal]
  - Hypertrophic cardiomyopathy [Recovered/Resolved]
  - Fatigue [Recovered/Resolved]
  - Epistaxis [Recovered/Resolved]
  - Palmar-plantar erythrodysaesthesia syndrome [Recovered/Resolved]
  - Thrombocytopenia [Recovered/Resolved]
  - Thrombocytopenia [Recovered/Resolved]
  - Thrombocytopenia [Recovered/Resolved]
  - Vitamin D deficiency [Recovered/Resolved]
  - Blood bilirubin increased [Recovered/Resolved]
  - Alanine aminotransferase increased [Recovered/Resolved]
  - Aspartate aminotransferase increased [Recovered/Resolved]

NARRATIVE: CASE EVENT DATE: 20180320
